FAERS Safety Report 6293622-7 (Version None)
Quarter: 2009Q3

REPORT INFORMATION
  Report Type: 
  Country: None (occurrence: None)
  Receive Date: 20090803
  Receipt Date: 20090722
  Transmission Date: 20100115
  Serious: Yes (Life-Threatening, Hospitalization)
  Sender: FDA-Public Use
  Company Number: GB-RANBAXY-2009RR-23349

PATIENT
  Age: 13 Year
  Sex: Female

DRUGS (2)
  1. PARACETAMOL [Suspect]
     Indication: TOOTHACHE
     Dosage: 1 G, QID
  2. PARACETAMOL [Suspect]
     Indication: ORTHODONTIC PROCEDURE
     Dosage: 500 MG, UNK

REACTIONS (10)
  - ABDOMINAL PAIN [None]
  - ACCIDENTAL OVERDOSE [None]
  - ALANINE AMINOTRANSFERASE INCREASED [None]
  - DIZZINESS [None]
  - HAEMATEMESIS [None]
  - HYPOPHAGIA [None]
  - LIVER INJURY [None]
  - MALLORY-WEISS SYNDROME [None]
  - PROTHROMBIN TIME PROLONGED [None]
  - VOMITING [None]
